FAERS Safety Report 8294728-3 (Version None)
Quarter: 2012Q2

REPORT INFORMATION
  Report Type: 
  Country: None (occurrence: None)
  Receive Date: 20120418
  Receipt Date: 20120412
  Transmission Date: 20120825
  Serious: Yes (Other)
  Sender: FDA-Public Use
  Company Number: BR-BAYER-2012-034997

PATIENT
  Age: 65 Year
  Sex: Female
  Weight: 65 kg

DRUGS (3)
  1. NIFEDIPINE [Suspect]
     Indication: HYPERTENSION
     Dosage: 1 DF, OM
     Route: 048
     Dates: start: 20120228, end: 20120413
  2. ALLOPURINOL [Concomitant]
     Indication: GOUT
     Dosage: 2 DF, QD
     Route: 048
     Dates: start: 20120301
  3. LEVOTHYROXINE SODIUM [Concomitant]
     Indication: HYPOTHYROIDISM
     Dosage: 1 DF, QD
     Route: 048
     Dates: start: 20120301

REACTIONS (7)
  - OEDEMA PERIPHERAL [None]
  - SWELLING FACE [None]
  - HEART RATE INCREASED [None]
  - DRY MOUTH [None]
  - HEADACHE [None]
  - MUSCLE SPASMS [None]
  - HYPERTENSION [None]
